FAERS Safety Report 4570431-8 (Version None)
Quarter: 2005Q1

REPORT INFORMATION
  Report Type: 
  Country: None (occurrence: None)
  Receive Date: 20050204
  Receipt Date: 20050126
  Transmission Date: 20050727
  Serious: Yes (Life-Threatening, Hospitalization, Other)
  Sender: FDA-Public Use
  Company Number: GB-MERCK-0501GBR00258

PATIENT
  Age: 66 Year
  Sex: Male

DRUGS (10)
  1. ZOCOR [Suspect]
     Indication: PROPHYLAXIS
     Route: 048
     Dates: start: 20020101, end: 20041110
  2. AMIODARONE [Suspect]
     Indication: ATRIAL FIBRILLATION
     Route: 048
     Dates: start: 20020101, end: 20041110
  3. ASPIRIN [Concomitant]
     Route: 048
  4. BECLOMETHASONE DIPROPIONATE [Concomitant]
     Route: 055
  5. BISOPROLOL [Concomitant]
     Route: 048
  6. NITROGLYCERIN [Concomitant]
     Route: 060
  7. IPRATROPIUM BROMIDE [Concomitant]
     Route: 055
  8. ACETAMINOPHEN [Concomitant]
     Route: 048
  9. ALBUTEROL [Concomitant]
     Route: 055
  10. HYDROCORTISONE [Concomitant]
     Route: 061

REACTIONS (7)
  - HEPATITIS [None]
  - JAUNDICE CHOLESTATIC [None]
  - LIVER FUNCTION TEST ABNORMAL [None]
  - LOWER RESPIRATORY TRACT INFECTION [None]
  - PLEURAL EFFUSION [None]
  - PRURITUS [None]
  - URINARY TRACT INFECTION [None]
